FAERS Safety Report 23435862 (Version 1)
Quarter: 2024Q1

REPORT INFORMATION
  Report Type: Spontaneous
  Country: US (occurrence: US)
  Receive Date: 20240124
  Receipt Date: 20240124
  Transmission Date: 20240410
  Serious: Yes (Other)
  Sender: FDA-Public Use
  Company Number: US-PIRAMAL CRITICAL CARE LIMITED-2024-PPL-000054

PATIENT

DRUGS (7)
  1. SEVOFLURANE [Suspect]
     Active Substance: SEVOFLURANE
     Indication: Maintenance of anaesthesia
     Dosage: 2.5% ON THE VAPORIZER
  2. PROPOFOL [Concomitant]
     Active Substance: PROPOFOL
     Indication: Product used for unknown indication
     Dosage: 200 MILLIGRAM
     Route: 042
  3. PROPOFOL [Concomitant]
     Active Substance: PROPOFOL
     Indication: Maintenance of anaesthesia
  4. ROCURONIUM [Concomitant]
     Active Substance: ROCURONIUM BROMIDE
     Indication: Product used for unknown indication
     Dosage: 50 MILLIGRAM
     Route: 042
  5. REMIFENTANIL [Concomitant]
     Active Substance: REMIFENTANIL
     Indication: Maintenance of anaesthesia
     Dosage: UNK
  6. CEPHAZOLIN                         /00288501/ [Concomitant]
     Indication: Abscess
     Dosage: 1 GRAM
  7. GENTAMICIN [Concomitant]
     Active Substance: GENTAMICIN
     Indication: Abscess
     Dosage: 100 MILLIGRAM

REACTIONS (4)
  - Sinus tachycardia [Unknown]
  - Rhabdomyolysis [Unknown]
  - Hyperthermia malignant [Recovered/Resolved]
  - Hypercapnia [Recovered/Resolved]
